FAERS Safety Report 9708644 (Version 1)
Quarter: 2013Q4

REPORT INFORMATION
  Report Type: Spontaneous
  Country: US (occurrence: US)
  Receive Date: 20131125
  Receipt Date: 20131125
  Transmission Date: 20140711
  Serious: Yes (Other)
  Sender: FDA-Public Use
  Company Number: US-TEVA-446309USA

PATIENT
  Sex: Female
  Weight: 59.02 kg

DRUGS (1)
  1. PARAGARD 380A [Suspect]
     Indication: CONTRACEPTION
     Route: 015
     Dates: start: 200103

REACTIONS (4)
  - Arthritis infective [Recovered/Resolved]
  - Shoulder operation [Recovered/Resolved]
  - Premenstrual cramps [Not Recovered/Not Resolved]
  - Incorrect drug administration duration [Not Recovered/Not Resolved]
